FAERS Safety Report 5725639-2 (Version None)
Quarter: 2008Q2

REPORT INFORMATION
  Report Type: 
  Country: None (occurrence: None)
  Receive Date: 20080501
  Receipt Date: 20080404
  Transmission Date: 20081010
  Serious: No
  Sender: FDA-Public Use
  Company Number: US-BOEHRINGER INGELHEIM GMBH, GERMANY-2008-BP-05444BP

PATIENT
  Sex: Female

DRUGS (5)
  1. SPIRIVA [Suspect]
     Indication: CHRONIC OBSTRUCTIVE PULMONARY DISEASE
  2. ALBUTEROL SULFATE [Concomitant]
     Indication: DYSPNOEA
  3. COMBIVENT [Concomitant]
     Indication: DYSPNOEA
  4. SEREVENT [Concomitant]
     Indication: DYSPNOEA
  5. OTHER PRESCRIPTION MEDICATIONS [Concomitant]
     Indication: DYSPNOEA

REACTIONS (1)
  - FOREIGN BODY TRAUMA [None]
